FAERS Safety Report 23366455 (Version 2)
Quarter: 2025Q2

REPORT INFORMATION
  Report Type: Spontaneous
  Country: CA (occurrence: CA)
  Receive Date: 20240104
  Receipt Date: 20250522
  Transmission Date: 20250716
  Serious: Yes (Hospitalization, Other)
  Sender: PFIZER
  Company Number: CA-PFIZER INC-202300454113

PATIENT
  Age: 83 Year
  Sex: Male

DRUGS (18)
  1. VYNDAMAX [Suspect]
     Active Substance: TAFAMIDIS
     Indication: Cardiac amyloidosis
     Dosage: 61 MG, 1X/DAY (1 CAPSULE OD)
     Route: 048
     Dates: start: 20230324
  2. ALDACTONE [Concomitant]
     Active Substance: SPIRONOLACTONE
     Dosage: 25 MG, 1X/DAY (1 TABLET OD)
     Route: 048
  3. ACETAMINOPHEN [Concomitant]
     Active Substance: ACETAMINOPHEN
     Dosage: 500 MG, 1X/DAY (1 TABLET OD)
     Route: 048
  4. ATORVASTATIN [Concomitant]
     Active Substance: ATORVASTATIN
  5. BISOPROLOL [Concomitant]
     Active Substance: BISOPROLOL
  6. FINASTERIDE [Concomitant]
     Active Substance: FINASTERIDE
  7. GLUCOSAMINE [Concomitant]
     Active Substance: GLUCOSAMINE
     Dosage: 2 CAPSULES OD
     Route: 048
  8. JARDIANCE [Concomitant]
     Active Substance: EMPAGLIFLOZIN
     Route: 048
  9. LIPITOR [Concomitant]
     Active Substance: ATORVASTATIN CALCIUM
     Dosage: 40 MG, 1X/DAY (1 TABLET OD)
     Route: 048
  10. EDOXABAN TOSYLATE [Concomitant]
     Active Substance: EDOXABAN TOSYLATE
     Dosage: 60 MG, 1X/DAY (1 TABLET OD)
     Route: 048
  11. SPIRONOLACTONE [Concomitant]
     Active Substance: SPIRONOLACTONE
  12. SYMBICORT [Concomitant]
     Active Substance: BUDESONIDE\FORMOTEROL FUMARATE DIHYDRATE
     Dosage: 6+200MCG POWDER INH. (INH-ORAL); 2 INHALATIONS BID
     Route: 048
  13. FUROSEMIDE [Concomitant]
     Active Substance: FUROSEMIDE
     Dosage: 20 MG, 1X/DAY (1 TABLET OD-PRN)
     Route: 048
  14. VENTOLIN HFA [Concomitant]
     Active Substance: ALBUTEROL SULFATE
     Route: 048
  15. VITAMIN D3 [Concomitant]
     Active Substance: CHOLECALCIFEROL
     Dosage: 25 UG, 1X/DAY (1 TAB OD)
  16. SYMBICORT [Concomitant]
     Active Substance: BUDESONIDE\FORMOTEROL FUMARATE DIHYDRATE
  17. VENTOLIN [Concomitant]
     Active Substance: ALBUTEROL SULFATE
  18. FUROSEMIDE [Concomitant]
     Active Substance: FUROSEMIDE

REACTIONS (13)
  - Bradycardia [Not Recovered/Not Resolved]
  - Left ventricular hypertrophy [Not Recovered/Not Resolved]
  - Syncope [Recovered/Resolved]
  - Atrial fibrillation [Recovering/Resolving]
  - Dizziness [Recovered/Resolved]
  - Dyspnoea [Recovered/Resolved]
  - Dizziness postural [Not Recovered/Not Resolved]
  - Presyncope [Recovered/Resolved]
  - Right ventricular dysfunction [Not Recovered/Not Resolved]
  - Ejection fraction [Not Recovered/Not Resolved]
  - Left atrial enlargement [Not Recovered/Not Resolved]
  - Diastolic dysfunction [Unknown]
  - Hypotension [Unknown]

NARRATIVE: CASE EVENT DATE: 20230101
